FAERS Safety Report 10200955 (Version 4)
Quarter: 2014Q2

REPORT INFORMATION
  Report Type: Report from Study
  Country: CN (occurrence: CN)
  Receive Date: 20140528
  Receipt Date: 20140612
  Transmission Date: 20141212
  Serious: Yes (Hospitalization)
  Sender: FDA-Public Use
  Company Number: CN-ROCHE-1408339

PATIENT
  Age: 77 Year
  Sex: Male
  Weight: 83 kg

DRUGS (5)
  1. OBINUTUZUMAB [Suspect]
     Indication: DIFFUSE LARGE B-CELL LYMPHOMA
     Dosage: DATE OF MOST RECENT DOSE (VOLUME : 250 ML AND DOSE CONCENTRATION : 4 MG/ML) PRIOR TO AE ONSET : 13/M
     Route: 042
     Dates: start: 20140123
  2. CYCLOPHOSPHAMIDE [Suspect]
     Indication: DIFFUSE LARGE B-CELL LYMPHOMA
     Dosage: DATE OF LAST DOSE (1500 MG) PRIOR TO AE ONSET : 13/MAY/2014.
     Route: 042
     Dates: start: 20140124, end: 20140513
  3. DOXORUBICIN [Suspect]
     Indication: DIFFUSE LARGE B-CELL LYMPHOMA
     Dosage: DATE OF LAST DOSE (100 MG) PRIOR TO AE ONSET : 13/MAY/2014.
     Route: 042
     Dates: start: 20140124, end: 20140513
  4. VINCRISTINE [Suspect]
     Indication: DIFFUSE LARGE B-CELL LYMPHOMA
     Dosage: DATE OF LAST DOSE (1.5 MG) PRIOR TO AE ONSET 13/MAY/2014.
     Route: 040
     Dates: start: 20140124, end: 20140513
  5. PREDNISOLONE [Suspect]
     Indication: DIFFUSE LARGE B-CELL LYMPHOMA
     Dosage: DATE OF LAST DOSE (100 MG) PRIOR TO AE ONSET : 17/MAY/2014.
     Route: 048
     Dates: start: 20140124, end: 20140517

REACTIONS (1)
  - Leukopenia [Not Recovered/Not Resolved]
